FAERS Safety Report 4750464-9 (Version None)
Quarter: 2005Q3

REPORT INFORMATION
  Report Type: 
  Country: None (occurrence: None)
  Receive Date: 20050823
  Receipt Date: 20050819
  Transmission Date: 20060218
  Serious: Yes (Death, Other)
  Sender: FDA-Public Use
  Company Number: US-GLAXOSMITHKLINE-A0570961A

PATIENT
  Age: 58 Year
  Sex: Female

DRUGS (10)
  1. WELLBUTRIN [Suspect]
     Indication: PAIN MANAGEMENT
     Dosage: 150MG PER DAY
     Route: 048
     Dates: start: 20050101
  2. HYDROCODONE [Concomitant]
  3. DIAZEPAM [Concomitant]
  4. ENDOCET [Concomitant]
  5. PREVACID [Concomitant]
  6. OMEPRAZOLE [Concomitant]
  7. SKELAXIN [Concomitant]
  8. TRAZODONE [Concomitant]
  9. PREMARIN [Concomitant]
  10. AMBIEN [Concomitant]

REACTIONS (2)
  - BREAST CANCER [None]
  - MURDER [None]
